FAERS Safety Report 9264436 (Version 1)
Quarter: 2013Q2

REPORT INFORMATION
  Report Type: Spontaneous
  Country: FR (occurrence: FR)
  Receive Date: 20130501
  Receipt Date: 20130501
  Transmission Date: 20140414
  Serious: Yes (Hospitalization)
  Sender: FDA-Public Use
  Company Number: FR-ROCHE-1219536

PATIENT
  Age: 81 Year
  Sex: Male

DRUGS (7)
  1. LUCENTIS [Suspect]
     Indication: PRODUCT USED FOR UNKNOWN INDICATION
     Dosage: 10 MG/L
     Route: 050
     Dates: start: 20121224
  2. LUCENTIS [Suspect]
     Route: 050
     Dates: start: 20130123, end: 20130123
  3. VISKEN [Concomitant]
     Route: 065
  4. INEGY [Concomitant]
     Route: 065
  5. MICARDIS PLUS [Concomitant]
     Route: 065
  6. KARDEGIC [Concomitant]
  7. MANIDIPINE [Concomitant]
     Route: 065

REACTIONS (1)
  - Ischaemic stroke [Recovering/Resolving]
